FAERS Safety Report 9653338 (Version 2)
Quarter: 2013Q4

REPORT INFORMATION
  Report Type: Spontaneous
  Country: US (occurrence: US)
  Receive Date: 20131029
  Receipt Date: 20131029
  Transmission Date: 20140711
  Serious: No
  Sender: FDA-Public Use
  Company Number: US-ABBVIE-13P-163-1137886-00

PATIENT
  Age: 36 Year
  Sex: Female
  Weight: 68.1 kg

DRUGS (8)
  1. HUMIRA [Suspect]
     Indication: COLITIS ULCERATIVE
     Route: 058
     Dates: start: 20130617, end: 20130617
  2. HUMIRA [Suspect]
     Route: 058
     Dates: start: 20130701, end: 20130701
  3. ASACOL HD [Concomitant]
     Indication: PRODUCT USED FOR UNKNOWN INDICATION
     Route: 048
     Dates: start: 20130319
  4. DEXILANT [Concomitant]
     Indication: PRODUCT USED FOR UNKNOWN INDICATION
     Route: 048
  5. DICYCLOMINE HCL [Concomitant]
     Indication: PRODUCT USED FOR UNKNOWN INDICATION
     Dosage: 1 CAPSULE EVERY 6 HOURS AS NEEDED
     Route: 048
  6. DIGESTIVE ENZYMES [Concomitant]
     Indication: PRODUCT USED FOR UNKNOWN INDICATION
     Dosage: USE AS DIRECTED
     Route: 048
  7. RECTIV [Concomitant]
     Indication: ANAL FISSURE
     Dosage: INSERT 1 INCH TWICE DAILY
     Dates: start: 20130618
  8. METOCLOPRAMIED HCL [Concomitant]
     Indication: ANAL FISSURE
     Dosage: 1 TABLET 30 MINUTES BEFORE MEALS AND AT BEDTIME
     Route: 048
     Dates: start: 20130618

REACTIONS (1)
  - Hyperhidrosis [Recovering/Resolving]
